FAERS Safety Report 6783077-8 (Version None)
Quarter: 2010Q2

REPORT INFORMATION
  Report Type: 
  Country: None (occurrence: None)
  Receive Date: 20100618
  Receipt Date: 20100603
  Transmission Date: 20101027
  Serious: Yes (Hospitalization, Other)
  Sender: FDA-Public Use
  Company Number: A-US2010-36793

PATIENT
  Age: 4 Year
  Sex: Male

DRUGS (3)
  1. TRACLEER [Suspect]
     Indication: PULMONARY ARTERIAL HYPERTENSION
     Dosage: 31.25 MG, BID, ORAL; 31.25 MG, BID;
     Route: 048
     Dates: start: 20090706, end: 20090801
  2. TRACLEER [Suspect]
     Indication: PULMONARY ARTERIAL HYPERTENSION
     Dosage: 31.25 MG, BID, ORAL; 31.25 MG, BID;
     Route: 048
     Dates: start: 20090801, end: 20100517
  3. TRACLEER [Suspect]
     Indication: PULMONARY ARTERIAL HYPERTENSION
     Dosage: 31.25 MG, BID, ORAL; 31.25 MG, BID;
     Route: 048
     Dates: start: 20100524

REACTIONS (8)
  - ALANINE AMINOTRANSFERASE INCREASED [None]
  - ARRHYTHMIA SUPRAVENTRICULAR [None]
  - ASPARTATE AMINOTRANSFERASE INCREASED [None]
  - BLOOD ALKALINE PHOSPHATASE INCREASED [None]
  - CARDIAC OPERATION [None]
  - CARDIOPULMONARY BYPASS [None]
  - LIVER INJURY [None]
  - OFF LABEL USE [None]
